FAERS Safety Report 4423385-9 (Version None)
Quarter: 2004Q3

REPORT INFORMATION
  Report Type: 
  Country: None (occurrence: None)
  Receive Date: 20040806
  Receipt Date: 20040713
  Transmission Date: 20050211
  Serious: Yes (Hospitalization)
  Sender: FDA-Public Use
  Company Number: FR-JNJFOC-20040607719

PATIENT
  Age: 87 Year
  Sex: Female
  Weight: 56 kg

DRUGS (10)
  1. RISPERDAL [Suspect]
     Indication: HALLUCINATION
     Dosage: 0.5 MG 2 IN 1 DAY ORAL
     Route: 048
  2. REMINYL [Suspect]
     Indication: DEMENTIA ALZHEIMER'S TYPE
     Dosage: 4 MG IN 1 DAY ORAL
     Route: 048
  3. LASIX [Concomitant]
  4. ALDACTONE [Concomitant]
  5. ASPIRIN [Concomitant]
  6. ATORVASTATIN CALCIUM [Concomitant]
  7. VASTAREL (TRIMETAZIDINE HYDROCHLORIDE) [Concomitant]
  8. CITALOPRAM HYDROBROMIDE [Concomitant]
  9. EQUANIL [Concomitant]
  10. OMEPRAZOLE [Concomitant]

REACTIONS (9)
  - ABNORMAL BEHAVIOUR [None]
  - ANXIETY [None]
  - BACTERIAL INFECTION [None]
  - FACE OEDEMA [None]
  - HALLUCINATION [None]
  - HYPERTONIA [None]
  - SOMNOLENCE [None]
  - URINARY TRACT INFECTION [None]
  - UROSEPSIS [None]
